FAERS Safety Report 16836303 (Version 1)
Quarter: 2019Q3

REPORT INFORMATION
  Report Type: Report from Study
  Country: IT (occurrence: IT)
  Receive Date: 20190921
  Receipt Date: 20190921
  Transmission Date: 20191005
  Serious: Yes (Hospitalization)
  Sender: FDA-Public Use
  Company Number: IT-ACCORD-155338

PATIENT
  Age: 59 Year
  Sex: Female

DRUGS (3)
  1. VENLAFAXINE [Concomitant]
     Active Substance: VENLAFAXINE HYDROCHLORIDE
     Route: 048
  2. QUETIAPINE. [Suspect]
     Active Substance: QUETIAPINE
     Route: 048
     Dates: start: 20190820, end: 20190820
  3. DELORAZEPAM [Suspect]
     Active Substance: DELORAZEPAM
     Route: 048
     Dates: start: 20190820, end: 20190820

REACTIONS (4)
  - Drug abuse [Unknown]
  - Cyanosis [Recovered/Resolved]
  - Sopor [Recovered/Resolved]
  - Intentional overdose [Unknown]

NARRATIVE: CASE EVENT DATE: 20190820
